FAERS Safety Report 21820977 (Version 3)
Quarter: 2025Q3

REPORT INFORMATION
  Report Type: Spontaneous
  Country: EU (occurrence: EU)
  Receive Date: 20230105
  Receipt Date: 20250816
  Transmission Date: 20251021
  Serious: Yes (Hospitalization, Other)
  Sender: AUROBINDO
  Company Number: EU-GT-20221668

PATIENT
  Age: 47 Year
  Sex: Male

DRUGS (1)
  1. RAMIPRIL [Suspect]
     Active Substance: RAMIPRIL
     Indication: Hypertension
     Route: 065

REACTIONS (6)
  - Abdominal pain [Recovered/Resolved]
  - Hypergammaglobulinaemia benign monoclonal [Recovered/Resolved]
  - Vomiting [Recovered/Resolved]
  - Acquired C1 inhibitor deficiency [Recovered/Resolved]
  - Infrequent bowel movements [Recovered/Resolved]
  - Intestinal angioedema [Recovered/Resolved]
